FAERS Safety Report 20484850 (Version 2)
Quarter: 2022Q1

REPORT INFORMATION
  Report Type: Spontaneous
  Country: JP (occurrence: JP)
  Receive Date: 20220217
  Receipt Date: 20220317
  Transmission Date: 20220424
  Serious: Yes (Other)
  Sender: FDA-Public Use
  Company Number: JP-PFIZER INC-202200229899

PATIENT
  Age: 78 Year
  Sex: Male
  Weight: 56 kg

DRUGS (12)
  1. AZITHROMYCIN ANHYDROUS [Suspect]
     Active Substance: AZITHROMYCIN ANHYDROUS
     Indication: Pneumonia
     Dosage: 500 MG, 1X/DAY
     Route: 042
     Dates: start: 20211015, end: 20211020
  2. YD SOLITA T NO.3 [Concomitant]
     Dosage: UNK
  3. ASPIRIN MARUISHI [Concomitant]
     Dosage: UNK
  4. SOYBEAN OIL [Concomitant]
     Active Substance: SOYBEAN OIL
     Dosage: 100 ML
  5. CORTRIL [Concomitant]
     Active Substance: HYDROCORTISONE
     Dosage: UNK
  6. ZOSYN [Concomitant]
     Active Substance: PIPERACILLIN SODIUM\TAZOBACTAM SODIUM
     Dosage: UNK
  7. NEXIUM [Concomitant]
     Active Substance: ESOMEPRAZOLE MAGNESIUM
     Dosage: UNK
  8. PREDNISOLONE [Concomitant]
     Active Substance: PREDNISOLONE
     Dosage: UNK
  9. HYDROCORTISONE SODIUM PHOSPHATE [Concomitant]
     Active Substance: HYDROCORTISONE SODIUM PHOSPHATE
     Dosage: UNK
  10. DISTILLED WATER [WATER] [Concomitant]
     Dosage: UNK
  11. SODIUM CHLORIDE [Concomitant]
     Active Substance: SODIUM CHLORIDE
     Dosage: UNK
  12. DEXTROSE [Concomitant]
     Active Substance: DEXTROSE
     Dosage: UNK

REACTIONS (4)
  - Pancytopenia [Unknown]
  - Platelet count decreased [Recovered/Resolved]
  - Respiratory disorder [Recovering/Resolving]
  - Haemoptysis [Not Recovered/Not Resolved]

NARRATIVE: CASE EVENT DATE: 20211015
